FAERS Safety Report 6139892-7 (Version None)
Quarter: 2009Q1

REPORT INFORMATION
  Report Type: 
  Country: None (occurrence: None)
  Receive Date: 20090324
  Receipt Date: 20090310
  Transmission Date: 20090719
  Serious: Yes (Hospitalization)
  Sender: FDA-Public Use
  Company Number: 223607

PATIENT
  Age: 65 Year
  Sex: Male
  Weight: 47 kg

DRUGS (1)
  1. CARBOPLATIN [Suspect]
     Dosage: INTRAVENOUS
     Route: 042
     Dates: start: 20070201, end: 20070401

REACTIONS (16)
  - ANAEMIA [None]
  - APTYALISM [None]
  - BLOOD CREATININE INCREASED [None]
  - BLOOD PRESSURE SYSTOLIC DECREASED [None]
  - BREATH SOUNDS ABNORMAL [None]
  - CREPITATIONS [None]
  - DYSPHAGIA [None]
  - DYSPNOEA [None]
  - INFLAMMATION [None]
  - LYMPHADENOPATHY [None]
  - MUCOSAL INFLAMMATION [None]
  - OEDEMA PERIPHERAL [None]
  - OXYGEN SATURATION DECREASED [None]
  - RADIATION INJURY [None]
  - RALES [None]
  - STOMATITIS [None]
